FAERS Safety Report 4399502-6 (Version None)
Quarter: 2004Q3

REPORT INFORMATION
  Report Type: 
  Country: None (occurrence: None)
  Receive Date: 20040716
  Receipt Date: 20031231
  Transmission Date: 20050211
  Serious: Yes (Hospitalization)
  Sender: FDA-Public Use
  Company Number: US-BRISTOL-MYERS SQUIBB COMPANY-12466983

PATIENT
  Age: 50 Year
  Sex: Male
  Weight: 86 kg

DRUGS (7)
  1. CISPLATIN [Suspect]
     Indication: MESOTHELIOMA
     Route: 042
     Dates: start: 20031209, end: 20031209
  2. PEMETREXED DISODIUM [Suspect]
     Indication: MESOTHELIOMA
     Route: 042
     Dates: start: 20031209, end: 20031209
  3. VITAMIN B-12 [Concomitant]
     Indication: VITAMIN SUPPLEMENTATION
     Dates: start: 20031201
  4. FOLIC ACID [Concomitant]
     Indication: VITAMIN SUPPLEMENTATION
     Dates: start: 20031201
  5. DEXAMETHASONE [Concomitant]
     Indication: PREMEDICATION
     Dates: start: 20031208
  6. OXYCONTIN [Concomitant]
     Indication: PAIN
     Dates: start: 20031117
  7. KYTRIL [Concomitant]
     Indication: NAUSEA
     Dates: start: 20031210

REACTIONS (7)
  - ARTHRALGIA [None]
  - HICCUPS [None]
  - NAUSEA [None]
  - PERICARDITIS [None]
  - PLEURITIC PAIN [None]
  - TREATMENT NONCOMPLIANCE [None]
  - VOMITING [None]
